FAERS Safety Report 13585343 (Version 2)
Quarter: 2017Q3

REPORT INFORMATION
  Report Type: Spontaneous
  Country: GB (occurrence: GB)
  Receive Date: 20170526
  Receipt Date: 20170810
  Transmission Date: 20171127
  Serious: Yes (Other)
  Sender: FDA-Public Use
  Company Number: GB-GLAXOSMITHKLINE-GB2017077286

PATIENT
  Age: 33 Month
  Sex: Male

DRUGS (3)
  1. CHLORPHENAMINE [Concomitant]
     Active Substance: CHLORPHENIRAMINE MALEATE
     Dosage: 4-6 HOURLY. I DON^T KNOW IF PARENTS GAVE THIS.
     Route: 048
  2. ACICLOVIR [Suspect]
     Active Substance: ACYCLOVIR
     Indication: VARICELLA
     Dosage: 400MG/5ML
     Route: 048
     Dates: start: 20170401, end: 20170402
  3. CHLORPHENAMINE [Concomitant]
     Active Substance: CHLORPHENIRAMINE MALEATE
     Indication: PRODUCT USED FOR UNKNOWN INDICATION
     Dosage: 4-6 HOURLY. I DON^T KNOW IF PARENTS GAVE THIS.
     Route: 048

REACTIONS (3)
  - Gait disturbance [Recovered/Resolved]
  - Hallucination, visual [Recovered/Resolved]
  - Depressed level of consciousness [Recovered/Resolved]

NARRATIVE: CASE EVENT DATE: 20170401
